FAERS Safety Report 6147024-4 (Version None)
Quarter: 2009Q2

REPORT INFORMATION
  Report Type: 
  Country: None (occurrence: None)
  Receive Date: 20090402
  Receipt Date: 20090319
  Transmission Date: 20091009
  Serious: Yes (Hospitalization)
  Sender: FDA-Public Use
  Company Number: ENTC2009-0070

PATIENT
  Age: 70 Year
  Sex: Male

DRUGS (3)
  1. STALEVO 100 [Suspect]
     Indication: PARKINSON'S DISEASE
     Dosage: 400MG ORAL
     Route: 048
     Dates: start: 20081127, end: 20090215
  2. TREMARIT [Concomitant]
  3. OMEPRAZOL [Concomitant]

REACTIONS (3)
  - DYSPEPSIA [None]
  - HAEMOPTYSIS [None]
  - UPPER GASTROINTESTINAL HAEMORRHAGE [None]
